FAERS Safety Report 5478954-4 (Version None)
Quarter: 2007Q4

REPORT INFORMATION
  Report Type: 
  Country: None (occurrence: None)
  Receive Date: 20071006
  Receipt Date: 20070926
  Transmission Date: 20080405
  Serious: Yes (Other)
  Sender: FDA-Public Use
  Company Number: JP-PFIZER INC-2007064499

PATIENT
  Age: 46 Year
  Sex: Female

DRUGS (4)
  1. ALDACTONE [Suspect]
     Dosage: DAILY DOSE:25MG
     Route: 048
  2. GLEEVEC [Concomitant]
  3. LASIX [Concomitant]
  4. DRUG, UNSPECIFIED [Concomitant]

REACTIONS (2)
  - BREAST SWELLING [None]
  - METRORRHAGIA [None]
